FAERS Safety Report 7714716-2 (Version None)
Quarter: 2011Q3

REPORT INFORMATION
  Report Type: 
  Country: None (occurrence: None)
  Receive Date: 20110829
  Receipt Date: 20110818
  Transmission Date: 20111222
  Serious: Yes (Hospitalization)
  Sender: FDA-Public Use
  Company Number: ES-PERRIGO-11ES006742

PATIENT
  Age: 35 Year
  Sex: Female

DRUGS (1)
  1. ACETAMINOPHEN [Suspect]
     Indication: DYSMENORRHOEA
     Dosage: 650MG, ONCE A MONTH FOR LAST YEAR TILL 11 DAYS BEFORE ALI
     Route: 065

REACTIONS (2)
  - HEPATOCELLULAR INJURY [None]
  - LIVER INJURY [None]
